FAERS Safety Report 14806920 (Version 3)
Quarter: 2019Q4

REPORT INFORMATION
  Report Type: Report from Study
  Country: US (occurrence: US)
  Receive Date: 20180425
  Receipt Date: 20191010
  Transmission Date: 20200122
  Serious: Yes (Hospitalization, Other)
  Sender: FDA-Public Use
  Company Number: US-ROCHE-2018644

PATIENT
  Age: 68 Year
  Sex: Male
  Weight: 113.5 kg

DRUGS (3)
  1. DALFAMPRIDINE. [Concomitant]
     Active Substance: DALFAMPRIDINE
     Indication: PRIMARY PROGRESSIVE MULTIPLE SCLEROSIS
  2. OCREVUS [Suspect]
     Active Substance: OCRELIZUMAB
     Indication: RELAPSING MULTIPLE SCLEROSIS
     Route: 042
     Dates: start: 20170608
  3. OCREVUS [Suspect]
     Active Substance: OCRELIZUMAB
     Indication: PRIMARY PROGRESSIVE MULTIPLE SCLEROSIS
     Dosage: SUBSEQUENT DATES OF TREATMENT: 08-JUN-2017, 22-JUN-2017, 21-DEC-2017, 20-DEC-2018 AND 03-JAN-2019.
     Route: 042
     Dates: start: 201703

REACTIONS (7)
  - Lung neoplasm malignant [Recovered/Resolved]
  - Nausea [Recovered/Resolved]
  - Magnetic resonance imaging thoracic abnormal [Unknown]
  - Magnetic resonance imaging thoracic abnormal [Recovered/Resolved]
  - Chest pain [Recovered/Resolved]
  - Cholecystitis infective [Recovered/Resolved]
  - Cholelithiasis [Recovered/Resolved]

NARRATIVE: CASE EVENT DATE: 20190618
